FAERS Safety Report 8540006-4 (Version None)
Quarter: 2012Q3

REPORT INFORMATION
  Report Type: 
  Country: None (occurrence: None)
  Receive Date: 20120726
  Receipt Date: 20120717
  Transmission Date: 20120928
  Serious: Yes (Hospitalization)
  Sender: FDA-Public Use
  Company Number: FR-ASTRAZENECA-2012SE50942

PATIENT
  Age: 945 Month
  Sex: Male

DRUGS (4)
  1. CRESTOR [Suspect]
     Route: 048
     Dates: start: 20110317, end: 20111122
  2. AMLODIPINE BESYLATE [Concomitant]
     Route: 048
     Dates: start: 20110101
  3. IKOREL [Concomitant]
     Route: 048
     Dates: start: 20110101
  4. PLAVIX [Concomitant]
     Route: 048
     Dates: start: 20110101

REACTIONS (1)
  - PLEURAL EFFUSION [None]
